FAERS Safety Report 6012275-6 (Version None)
Quarter: 2008Q4

REPORT INFORMATION
  Report Type: 
  Country: None (occurrence: None)
  Receive Date: 20081218
  Receipt Date: 20081208
  Transmission Date: 20090506
  Serious: Yes (Hospitalization)
  Sender: FDA-Public Use
  Company Number: FR-ROCHE-601355

PATIENT
  Sex: Male

DRUGS (7)
  1. ROCEPHIN [Suspect]
     Indication: DRUG USE FOR UNKNOWN INDICATION
     Dosage: FREQ: QD
     Route: 042
     Dates: start: 20080911, end: 20080916
  2. OFLOXACIN [Suspect]
     Indication: DRUG USE FOR UNKNOWN INDICATION
     Dosage: FREQ: QD
     Route: 042
     Dates: start: 20080911, end: 20080916
  3. LODOZ [Concomitant]
  4. PLAVIX [Concomitant]
  5. CRESTOR [Concomitant]
  6. MEDIATOR [Concomitant]
  7. ALDALIX [Concomitant]

REACTIONS (1)
  - CONFUSIONAL STATE [None]
